FAERS Safety Report 11298638 (Version 1)
Quarter: 2015Q3

REPORT INFORMATION
  Report Type: Spontaneous
  Country: US (occurrence: US)
  Receive Date: 20150722
  Receipt Date: 20150722
  Transmission Date: 20151125
  Serious: No
  Sender: FDA-Public Use
  Company Number: US-ELI_LILLY_AND_COMPANY-US201202001993

PATIENT
  Age: 76 Year
  Sex: Male

DRUGS (9)
  1. ASPIRIN. [Concomitant]
     Active Substance: ASPIRIN
     Dosage: UNK, UNKNOWN
  2. RANITIDINE [Concomitant]
     Active Substance: RANITIDINE\RANITIDINE HYDROCHLORIDE
     Dosage: UNK, UNKNOWN
  3. INSULIN [Concomitant]
     Active Substance: INSULIN NOS
     Dosage: UNK, UNKNOWN
  4. NORVASC [Concomitant]
     Active Substance: AMLODIPINE BESYLATE
     Dosage: UNK, UNKNOWN
  5. ISOSORBIDE. [Concomitant]
     Active Substance: ISOSORBIDE
     Dosage: UNK, UNKNOWN
  6. EFFIENT [Suspect]
     Active Substance: PRASUGREL HYDROCHLORIDE
     Indication: STENT PLACEMENT
     Dosage: 10 MG, UNKNOWN
     Dates: start: 201109
  7. ENALAPRIL [Concomitant]
     Active Substance: ENALAPRIL
     Dosage: UNK, UNKNOWN
  8. MULTIVITAMIN [Concomitant]
     Active Substance: VITAMINS
     Dosage: UNK, UNKNOWN
  9. METOPROLOL [Concomitant]
     Active Substance: METOPROLOL
     Dosage: UNK, UNKNOWN

REACTIONS (6)
  - Malaise [Unknown]
  - Apathy [Unknown]
  - Disturbance in attention [Unknown]
  - Haematoma [Unknown]
  - Headache [Unknown]
  - Confusional state [Unknown]
